FAERS Safety Report 18071929 (Version 1)
Quarter: 2020Q3

REPORT INFORMATION
  Report Type: Spontaneous
  Country: US (occurrence: US)
  Receive Date: 20200725
  Receipt Date: 20200725
  Transmission Date: 20201103
  Serious: No
  Sender: FDA-Public Use
  Company Number: None

PATIENT
  Age: 32 Year
  Sex: Female
  Weight: 81 kg

DRUGS (1)
  1. HEPARIN [Suspect]
     Active Substance: HEPARIN SODIUM
     Indication: FACTOR V LEIDEN CARRIER
     Route: 058

REACTIONS (3)
  - Product dose omission issue [None]
  - Product dispensing error [None]
  - Pregnancy [None]

NARRATIVE: CASE EVENT DATE: 20200724
